FAERS Safety Report 10703120 (Version 2)
Quarter: 2015Q1

REPORT INFORMATION
  Report Type: Spontaneous
  Country: IE (occurrence: IE)
  Receive Date: 20150112
  Receipt Date: 20150219
  Transmission Date: 20150721
  Serious: Yes (Hospitalization, Other)
  Sender: FDA-Public Use
  Company Number: IE-AMGEN-IRLSP2015001330

PATIENT
  Age: 69 Year
  Sex: Female

DRUGS (5)
  1. REFRESH CELLUVISC [Concomitant]
     Active Substance: CARBOXYMETHYLCELLULOSE SODIUM
     Dosage: UNK, DROPSAS NEEDED
  2. NADOLOL. [Concomitant]
     Active Substance: NADOLOL
     Dosage: 20 MG, 2X/DAY
     Dates: start: 201009
  3. ENBREL [Suspect]
     Active Substance: ETANERCEPT
     Indication: RHEUMATOID ARTHRITIS
     Dosage: 50 MG, WEEKLY ONCE PER WEEK
     Route: 058
     Dates: start: 20140710, end: 20150101
  4. ALDACTONE [Concomitant]
     Active Substance: SPIRONOLACTONE
     Dosage: 25 MG, DAILY
     Dates: start: 201009
  5. NEXAZOL [Concomitant]
     Dosage: 40 MG, DAILY (SOMETIMES BD)
     Dates: start: 201009

REACTIONS (5)
  - Lower respiratory tract infection [Not Recovered/Not Resolved]
  - Cholelithiasis [Not Recovered/Not Resolved]
  - Diverticulitis [Not Recovered/Not Resolved]
  - Ileus [Not Recovered/Not Resolved]
  - Haemorrhage [Not Recovered/Not Resolved]

NARRATIVE: CASE EVENT DATE: 201412
